FAERS Safety Report 6039429-7 (Version None)
Quarter: 2009Q1

REPORT INFORMATION
  Report Type: 
  Country: None (occurrence: None)
  Receive Date: 20090115
  Receipt Date: 20090109
  Transmission Date: 20090719
  Serious: Yes (Hospitalization)
  Sender: FDA-Public Use
  Company Number: US-AMGEN-QUU295874

PATIENT
  Sex: Female

DRUGS (1)
  1. ENBREL [Suspect]
     Indication: PSORIATIC ARTHROPATHY
     Route: 058
     Dates: start: 20041201

REACTIONS (4)
  - EXOSTOSIS [None]
  - INJECTION SITE PAIN [None]
  - INTERVERTEBRAL DISC DISORDER [None]
  - PSORIATIC ARTHROPATHY [None]
